FAERS Safety Report 8579337-0 (Version None)
Quarter: 2012Q3

REPORT INFORMATION
  Report Type: 
  Country: None (occurrence: None)
  Receive Date: 20120808
  Receipt Date: 20120803
  Transmission Date: 20120928
  Serious: Yes (Other)
  Sender: FDA-Public Use
  Company Number: US-ROCHE-788378

PATIENT
  Sex: Female
  Weight: 52.21 kg

DRUGS (1)
  1. ACCUTANE [Suspect]
     Indication: ACNE
     Dates: start: 19830101, end: 19840101

REACTIONS (6)
  - DEPRESSION [None]
  - IRRITABLE BOWEL SYNDROME [None]
  - RECTAL POLYP [None]
  - INFLAMMATORY BOWEL DISEASE [None]
  - COLITIS ULCERATIVE [None]
  - ANAL FISSURE [None]
